FAERS Safety Report 18513611 (Version 1)
Quarter: 2020Q4

REPORT INFORMATION
  Report Type: Spontaneous
  Country: CN (occurrence: CN)
  Receive Date: 20201117
  Receipt Date: 20201117
  Transmission Date: 20210114
  Serious: Yes (Other)
  Sender: FDA-Public Use
  Company Number: CN-PFIZER INC-2020449586

PATIENT
  Age: 88 Year
  Sex: Male
  Weight: 57 kg

DRUGS (6)
  1. CELEBREX [Suspect]
     Active Substance: CELECOXIB
     Indication: ANALGESIC THERAPY
     Dosage: 200 MG, 1X/DAY
     Route: 048
     Dates: start: 20201027, end: 20201101
  2. CALCIUM DIBUTYRYLADENOSINE CYCLOPHOSPHATE [Suspect]
     Active Substance: BUCLADESINE CALCIUM
     Indication: THERAPEUTIC PROCEDURE
     Dosage: 40 MG, 1X/DAY
     Route: 041
     Dates: start: 20201021, end: 20201027
  3. SODIUM CHLORIDE. [Concomitant]
     Active Substance: SODIUM CHLORIDE
     Indication: VEHICLE SOLUTION USE
     Dosage: 100 ML, 2X/DAY
     Route: 041
     Dates: start: 20201025, end: 20201101
  4. SODIUM CHLORIDE. [Concomitant]
     Active Substance: SODIUM CHLORIDE
     Indication: VEHICLE SOLUTION USE
     Dosage: 250 ML, 1X/DAY
     Route: 041
     Dates: start: 20201021, end: 20201027
  5. DAN HONG [Suspect]
     Active Substance: HERBALS
     Indication: THERAPEUTIC PROCEDURE
     Dosage: 40 ML, 1X/DAY
     Route: 041
     Dates: start: 20201021, end: 20201027
  6. CEFOPERAZONE SODIUM AND TAZOBACTAM SODIUM [Suspect]
     Active Substance: CEFOPERAZONE\TAZOBACTAM SODIUM
     Indication: ANTI-INFECTIVE THERAPY
     Dosage: 2 G, 2X/DAY
     Route: 041
     Dates: start: 20201025, end: 20201101

REACTIONS (8)
  - Penile swelling [Recovering/Resolving]
  - Genital swelling [Recovering/Resolving]
  - Dysuria [Recovering/Resolving]
  - Rash macular [Recovering/Resolving]
  - Pruritus [Recovering/Resolving]
  - Mouth ulceration [Recovering/Resolving]
  - Oral mucosa erosion [Recovering/Resolving]
  - Rash [Recovering/Resolving]

NARRATIVE: CASE EVENT DATE: 20201031
